FAERS Safety Report 6009941-5 (Version None)
Quarter: 2008Q4

REPORT INFORMATION
  Report Type: 
  Country: None (occurrence: None)
  Receive Date: 20081218
  Receipt Date: 20081211
  Transmission Date: 20090506
  Serious: Yes (Hospitalization, Other)
  Sender: FDA-Public Use
  Company Number: US-BAYER-200834534NA

PATIENT
  Age: 57 Year
  Sex: Female
  Weight: 77 kg

DRUGS (1)
  1. MAGNEVIST [Suspect]
     Indication: ANGIOGRAM
     Dosage: TOTAL DAILY DOSE: 2 ML  UNIT DOSE: 100 ML
     Route: 042
     Dates: start: 20080922, end: 20080922

REACTIONS (4)
  - CHEST DISCOMFORT [None]
  - NAUSEA [None]
  - NECK PAIN [None]
  - VOMITING [None]
